FAERS Safety Report 4347803-X (Version None)
Quarter: 2004Q2

REPORT INFORMATION
  Report Type: 
  Country: None (occurrence: None)
  Receive Date: 20040422
  Receipt Date: 20040402
  Transmission Date: 20050107
  Serious: Yes (Hospitalization, Disabling)
  Sender: FDA-Public Use
  Company Number: US97075839A

PATIENT
  Age: 69 Year
  Sex: Female
  Weight: 152 kg

DRUGS (9)
  1. HUMALOG [Suspect]
     Indication: DIABETES MELLITUS
     Dates: start: 20010101
  2. HUMULIN R [Suspect]
     Indication: DIABETES MELLITUS
     Dates: start: 19970201
  3. HUMULIN N [Suspect]
     Indication: DIABETES MELLITUS
     Dates: start: 19970201
  4. RESULIN (NIMESULIDE) [Concomitant]
  5. FUROSEMIDE [Concomitant]
  6. COZAAR [Concomitant]
  7. PROPULSID [Concomitant]
  8. PREVACID [Concomitant]
  9. INSULIN GLARGINE [Concomitant]

REACTIONS (19)
  - ANOREXIA [None]
  - BEDRIDDEN [None]
  - BLOOD GLUCOSE FLUCTUATION [None]
  - CONFUSIONAL STATE [None]
  - CONJUNCTIVITIS [None]
  - CONSTIPATION [None]
  - DIZZINESS [None]
  - DRY MOUTH [None]
  - DYSPHAGIA [None]
  - FALL [None]
  - GASTRIC ULCER [None]
  - HEADACHE [None]
  - HIATUS HERNIA [None]
  - NEUROPATHY [None]
  - PHARMACEUTICAL PRODUCT COMPLAINT [None]
  - PRURITUS [None]
  - SLEEP DISORDER [None]
  - URINARY TRACT INFECTION [None]
  - VISUAL ACUITY REDUCED [None]
